FAERS Safety Report 17110332 (Version 1)
Quarter: 2019Q4

REPORT INFORMATION
  Report Type: Spontaneous
  Country: US (occurrence: US)
  Receive Date: 20191203
  Receipt Date: 20191203
  Transmission Date: 20200122
  Serious: Yes (Life-Threatening, Other)
  Sender: FDA-Public Use
  Company Number: None

PATIENT
  Age: 27 Year
  Sex: Female
  Weight: 69.4 kg

DRUGS (1)
  1. MIRENA [Suspect]
     Active Substance: LEVONORGESTREL

REACTIONS (6)
  - Neuralgia [None]
  - Procedural pain [None]
  - Myalgia [None]
  - Device dislocation [None]
  - Complication of device removal [None]
  - Product use complaint [None]

NARRATIVE: CASE EVENT DATE: 20191114
